FAERS Safety Report 15427288 (Version 3)
Quarter: 2018Q4

REPORT INFORMATION
  Report Type: Spontaneous
  Country: CN (occurrence: CN)
  Receive Date: 20180925
  Receipt Date: 20181015
  Transmission Date: 20190204
  Serious: Yes (Death)
  Sender: FDA-Public Use
  Company Number: CN-GEHC-2018CSU003756

PATIENT

DRUGS (1)
  1. OMNIPAQUE [Suspect]
     Active Substance: IOHEXOL
     Indication: GASTRIC CANCER
     Dosage: 80 ML, SINGLE
     Route: 042
     Dates: start: 20180918, end: 20180918

REACTIONS (9)
  - Muscle spasms [Fatal]
  - Pharyngeal oedema [Fatal]
  - Cardiac arrest [Fatal]
  - Dyspnoea [Fatal]
  - Confusional state [Fatal]
  - Vomiting [Fatal]
  - Cyanosis [Fatal]
  - Restlessness [Fatal]
  - Muscle twitching [Fatal]

NARRATIVE: CASE EVENT DATE: 20180918
